FAERS Safety Report 11788825 (Version 1)
Quarter: 2015Q4

REPORT INFORMATION
  Report Type: Report from Study
  Country: US (occurrence: US)
  Receive Date: 20151201
  Receipt Date: 20151201
  Transmission Date: 20160305
  Serious: Yes (Other)
  Sender: FDA-Public Use
  Company Number: US-AUROBINDO-AUR-APL-2015-10850

PATIENT
  Age: 25 Year
  Sex: Female

DRUGS (4)
  1. NICOTINE. [Concomitant]
     Active Substance: NICOTINE
     Indication: SMOKING CESSATION THERAPY
     Dosage: UNK
     Route: 065
     Dates: start: 20110312, end: 20150314
  2. RIBAVIRIN TABLET [Suspect]
     Active Substance: RIBAVIRIN
     Indication: PRODUCT USED FOR UNKNOWN INDICATION
     Dosage: 400 MG, DAILY
     Route: 048
     Dates: start: 20140904, end: 201412
  3. RIBAVIRIN TABLET [Suspect]
     Active Substance: RIBAVIRIN
     Dosage: 400 MG, DAILY
     Route: 048
     Dates: start: 201412, end: 20150119
  4. SIMEPREVIR [Suspect]
     Active Substance: SIMEPREVIR
     Indication: HEPATITIS C
     Dosage: 150 MG, DAILY
     Route: 065
     Dates: start: 20140821, end: 20150202

REACTIONS (4)
  - Exposure during pregnancy [Unknown]
  - Pruritus [Unknown]
  - Bile output increased [Unknown]
  - Cholestasis [Unknown]

NARRATIVE: CASE EVENT DATE: 20151006
